FAERS Safety Report 17306470 (Version 2)
Quarter: 2020Q1

REPORT INFORMATION
  Report Type: Spontaneous
  Country: DE (occurrence: DE)
  Receive Date: 20200123
  Receipt Date: 20200206
  Transmission Date: 20200409
  Serious: Yes (Other)
  Sender: FDA-Public Use
  Company Number: DE-AUROBINDO-AUR-APL-2020-003147

PATIENT
  Age: 1 Day
  Sex: Male
  Weight: 2.5 kg

DRUGS (5)
  1. SERTRALINE [Suspect]
     Active Substance: SERTRALINE HYDROCHLORIDE
     Indication: DEPRESSION
     Dosage: 75 MILLIGRAM PER DECILITRE,DOSAGE REDUCED TO 50 MG/D FROM GW 35
     Route: 064
     Dates: start: 20170629, end: 20180324
  2. FOLIO FORTE [Concomitant]
     Active Substance: FOLIC ACID\VITAMINS
     Indication: PROPHYLAXIS OF NEURAL TUBE DEFECT
     Dosage: 0.8 MILLIGRAM PER DECILITRE
     Route: 064
  3. METHYLDOPA. [Suspect]
     Active Substance: METHYLDOPA
     Indication: HYPERTENSION
     Dosage: 375 MILLIGRAM PER DECILITRE
     Route: 064
     Dates: start: 20170629, end: 20180226
  4. BUSCOPAN [Concomitant]
     Active Substance: BUTYLSCOPOLAMINE BROMIDE
     Indication: LABOUR PAIN
     Dosage: UNK
     Route: 064
  5. LACHGAS [Concomitant]
     Indication: LABOUR PAIN
     Dosage: UNK
     Route: 064

REACTIONS (1)
  - Small for dates baby [Recovering/Resolving]

NARRATIVE: CASE EVENT DATE: 20180324
